FAERS Safety Report 6419838-4 (Version None)
Quarter: 2009Q4

REPORT INFORMATION
  Report Type: 
  Country: None (occurrence: None)
  Receive Date: 20091029
  Receipt Date: 20091014
  Transmission Date: 20100525
  Serious: Yes (Other)
  Sender: FDA-Public Use
  Company Number: BE-GENENTECH-292624

PATIENT
  Age: 70 Year
  Sex: Male

DRUGS (1)
  1. LUCENTIS [Suspect]
     Indication: DRUG USE FOR UNKNOWN INDICATION
     Route: 031

REACTIONS (1)
  - FIBRIN D DIMER INCREASED [None]
